FAERS Safety Report 10225919 (Version 2)
Quarter: 2014Q2

REPORT INFORMATION
  Report Type: Spontaneous
  Country: US (occurrence: US)
  Receive Date: 20140609
  Receipt Date: 20140609
  Transmission Date: 20141212
  Serious: Yes (Other)
  Sender: FDA-Public Use
  Company Number: US-ASTELLAS-2013US009598

PATIENT
  Age: 2 Year
  Sex: Male

DRUGS (5)
  1. PROGRAF [Suspect]
     Indication: HEART TRANSPLANT
     Route: 065
     Dates: start: 20110921, end: 201306
  2. CELLCEPT                           /01275102/ [Concomitant]
     Indication: PRODUCT USED FOR UNKNOWN INDICATION
     Route: 065
  3. FLINTSTONE VITAMINS W/IRON [Concomitant]
     Indication: PRODUCT USED FOR UNKNOWN INDICATION
     Route: 065
  4. BACTRIM [Concomitant]
     Indication: PRODUCT USED FOR UNKNOWN INDICATION
     Route: 065
  5. FLUORIDE                           /00168201/ [Concomitant]
     Indication: PRODUCT USED FOR UNKNOWN INDICATION
     Route: 065

REACTIONS (1)
  - Hepatic enzyme increased [Recovered/Resolved]
